FAERS Safety Report 7389210-1 (Version None)
Quarter: 2011Q2

REPORT INFORMATION
  Report Type: 
  Country: None (occurrence: None)
  Receive Date: 20110401
  Receipt Date: 20110330
  Transmission Date: 20111010
  Serious: Yes (Disabling)
  Sender: FDA-Public Use
  Company Number: GB-SANOFI-AVENTIS-2011SA017710

PATIENT
  Age: 76 Year
  Sex: Male

DRUGS (11)
  1. ACETAMINOPHEN AND CODEINE PHOSPHATE [Concomitant]
     Route: 048
     Dates: start: 20100701
  2. ADALAT [Concomitant]
     Route: 048
     Dates: start: 20030101
  3. DUTASTERIDE [Concomitant]
     Route: 048
     Dates: start: 20100101
  4. SIMVASTATIN [Concomitant]
     Route: 048
     Dates: start: 20101217
  5. DOCETAXEL [Suspect]
     Indication: PROSTATE CANCER
     Route: 042
     Dates: start: 20110126, end: 20110126
  6. TAMSULOSIN HYDROCHLORIDE [Concomitant]
     Route: 048
     Dates: start: 20100701
  7. DOCETAXEL [Suspect]
     Route: 042
     Dates: start: 20110310, end: 20110310
  8. HORMONE ANTAGONISTS AND RELATED AGENTS [Suspect]
     Indication: PROSTATE CANCER
     Route: 058
     Dates: start: 20101111, end: 20110202
  9. BISOPROLOL FUMARATE [Concomitant]
     Route: 048
     Dates: start: 20030101
  10. PLAVIX [Concomitant]
     Route: 048
     Dates: start: 20030101
  11. GABAPENTIN [Concomitant]
     Route: 048
     Dates: start: 20030101

REACTIONS (1)
  - BLINDNESS TRANSIENT [None]
